FAERS Safety Report 4523206-X (Version None)
Quarter: 2004Q4

REPORT INFORMATION
  Report Type: 
  Country: None (occurrence: None)
  Receive Date: 20041208
  Receipt Date: 20041208
  Transmission Date: 20050328
  Serious: Yes (Other)
  Sender: FDA-Public Use
  Company Number: None

PATIENT
  Age: 68 Year
  Sex: Female
  Weight: 66.2252 kg

DRUGS (1)
  1. METOPROLOL [Suspect]
     Indication: VENTRICULAR EXTRASYSTOLES
     Dosage: 25 MG 1 BID
     Dates: start: 20041201

REACTIONS (2)
  - FEELING ABNORMAL [None]
  - NAUSEA [None]
